FAERS Safety Report 8853634 (Version 2)
Quarter: 2012Q4

REPORT INFORMATION
  Report Type: 
  Country: JP (occurrence: JP)
  Receive Date: 20121023
  Receipt Date: 20121119
  Transmission Date: 20130627
  Serious: Yes (Hospitalization)
  Sender: FDA-Public Use
  Company Number: JP-009507513-1210JPN004225

PATIENT
  Age: 77 Year
  Sex: Male

DRUGS (8)
  1. JANUVIA TABLETS 50MG [Suspect]
     Indication: TYPE 2 DIABETES MELLITUS
     Dosage: 50 mg, daily
     Route: 048
     Dates: start: 20120718
  2. BAYASPIRIN [Concomitant]
     Indication: ANGINA PECTORIS
     Dosage: 100 mg, qd
     Route: 048
  3. HERBESSER [Concomitant]
     Indication: HYPERTENSION
     Dosage: UNK UNK, bid
     Route: 048
  4. METHYCOBAL [Concomitant]
     Dosage: UNK UNK, tid
     Route: 048
  5. WARFARIN [Concomitant]
     Dosage: UNK UNK, qd
     Route: 048
  6. BLOPRESS [Concomitant]
     Indication: HYPERTENSION
     Dosage: 4 mg, qd
     Route: 048
  7. AMARYL [Concomitant]
     Indication: TYPE 2 DIABETES MELLITUS
     Dosage: 0.5 mg, qd
     Route: 048
     Dates: start: 20120829
  8. KINEDAK [Concomitant]
     Indication: DIABETIC NEUROPATHY
     Dosage: 50 mg, tid
     Route: 048
     Dates: start: 20120829

REACTIONS (1)
  - Limb discomfort [Recovered/Resolved]
